FAERS Safety Report 18753285 (Version 1)
Quarter: 2021Q1

REPORT INFORMATION
  Report Type: Spontaneous
  Country: US (occurrence: US)
  Receive Date: 20210118
  Receipt Date: 20210118
  Transmission Date: 20210419
  Serious: No
  Sender: FDA-Public Use
  Company Number: US-PFIZER INC-2020487943

PATIENT
  Age: 74 Year
  Sex: Female
  Weight: 88.44 kg

DRUGS (2)
  1. LETROZOLE. [Concomitant]
     Active Substance: LETROZOLE
     Dosage: UNK
     Dates: start: 20201118
  2. IBRANCE [Suspect]
     Active Substance: PALBOCICLIB
     Indication: BREAST CANCER METASTATIC
     Dosage: 125 MG, CYCLIC (QD (ONCE DAILY) X 3 WEEKS AND OFF FOR 1 WEEK THEN BACK ON X 3 WEEKS)
     Dates: start: 20201118

REACTIONS (4)
  - Taste disorder [Not Recovered/Not Resolved]
  - Dyspepsia [Recovered/Resolved]
  - Contusion [Not Recovered/Not Resolved]
  - Parosmia [Not Recovered/Not Resolved]

NARRATIVE: CASE EVENT DATE: 20201118
